FAERS Safety Report 10239388 (Version 1)
Quarter: 2014Q2

REPORT INFORMATION
  Report Type: Report from Study
  Country: US (occurrence: US)
  Receive Date: 20140616
  Receipt Date: 20140616
  Transmission Date: 20141212
  Serious: No
  Sender: FDA-Public Use
  Company Number: US-ABBVIE-14P-163-1245949-00

PATIENT
  Age: 49 Year
  Sex: Female

DRUGS (3)
  1. LUPANETA PACK [Suspect]
     Indication: UTERINE LEIOMYOMA
     Dates: start: 20140523
  2. LUPANETA PACK [Suspect]
     Indication: UTERINE LEIOMYOMA
     Dates: start: 20140530
  3. SYNTHROID [Concomitant]
     Indication: PRODUCT USED FOR UNKNOWN INDICATION

REACTIONS (4)
  - Night sweats [Recovering/Resolving]
  - Headache [Recovering/Resolving]
  - Muscular weakness [Not Recovered/Not Resolved]
  - Pain in extremity [Not Recovered/Not Resolved]
